FAERS Safety Report 8058926 (Version 2)
Quarter: 2014Q3

REPORT INFORMATION
  Report Type: Spontaneous
  Country: ZA (occurrence: ZA)
  Receive Date: 20110728
  Receipt Date: 20140801
  Transmission Date: 20150326
  Serious: No
  Sender: FDA-Public Use
  Company Number: ZA-ROCHE-791689

PATIENT
  Sex: Female

DRUGS (2)
  1. ROACCUTANE [Suspect]
     Active Substance: ISOTRETINOIN
     Route: 065
  2. ROACCUTANE [Suspect]
     Active Substance: ISOTRETINOIN
     Indication: PRODUCT USED FOR UNKNOWN INDICATION
     Route: 065

REACTIONS (2)
  - No adverse event [Unknown]
  - Pregnancy [Unknown]
